FAERS Safety Report 6820906-3 (Version None)
Quarter: 2010Q3

REPORT INFORMATION
  Report Type: 
  Country: None (occurrence: None)
  Receive Date: 20100707
  Receipt Date: 20070713
  Transmission Date: 20110219
  Serious: No
  Sender: FDA-Public Use
  Company Number: US-PFIZER INC-2007058021

PATIENT
  Sex: Female

DRUGS (4)
  1. ZOLOFT [Suspect]
     Indication: ANXIETY
     Dates: start: 20070629
  2. VITAMINS [Concomitant]
  3. SYNTHROID [Concomitant]
  4. ALBUTEROL [Concomitant]

REACTIONS (2)
  - DIARRHOEA [None]
  - INTENTIONAL DRUG MISUSE [None]
